FAERS Safety Report 17726068 (Version 2)
Quarter: 2020Q2

REPORT INFORMATION
  Report Type: Report from Study
  Country: US (occurrence: US)
  Receive Date: 20200429
  Receipt Date: 20200612
  Transmission Date: 20200714
  Serious: No
  Sender: FDA-Public Use
  Company Number: NVSC2020US116266

PATIENT
  Sex: Male

DRUGS (1)
  1. ENTRESTO [Suspect]
     Active Substance: SACUBITRIL\VALSARTAN
     Indication: PRODUCT USED FOR UNKNOWN INDICATION
     Dosage: 97 MG, ONCE2SDO
     Route: 048
     Dates: start: 201912

REACTIONS (5)
  - Cough [Not Recovered/Not Resolved]
  - Decreased appetite [Recovering/Resolving]
  - Pyrexia [Unknown]
  - Blood iron increased [Recovered/Resolved]
  - Weight decreased [Unknown]
